FAERS Safety Report 4502416-1 (Version None)
Quarter: 2004Q4

REPORT INFORMATION
  Report Type: 
  Country: None (occurrence: None)
  Receive Date: 20041110
  Receipt Date: 20041104
  Transmission Date: 20050328
  Serious: Yes (Death, Hospitalization)
  Sender: FDA-Public Use
  Company Number: 2004EU001951

PATIENT
  Age: 35 Year
  Sex: Male

DRUGS (5)
  1. PROGRAF [Suspect]
     Indication: RENAL TRANSPLANT
     Dosage: 3.00 MG, D, ORAL
     Route: 048
     Dates: start: 20040223, end: 20041010
  2. IMURAN [Concomitant]
  3. PREDNISOLONE [Concomitant]
  4. AMLODIPINE (AMLODIPINE) [Concomitant]
  5. ATENOLOL [Concomitant]

REACTIONS (3)
  - DIARRHOEA HAEMORRHAGIC [None]
  - PANCYTOPENIA [None]
  - PNEUMONIA PRIMARY ATYPICAL [None]
